FAERS Safety Report 13106968 (Version 2)
Quarter: 2017Q1

REPORT INFORMATION
  Report Type: Report from Study
  Country: PL (occurrence: PL)
  Receive Date: 20170111
  Receipt Date: 20170120
  Transmission Date: 20170428
  Serious: Yes (Other)
  Sender: FDA-Public Use
  Company Number: PL-BIOGEN-2017BI00337920

PATIENT
  Age: 45 Year
  Sex: Female
  Weight: 40 kg

DRUGS (4)
  1. DACLIZUMAB HYP [Suspect]
     Active Substance: DACLIZUMAB
     Indication: MULTIPLE SCLEROSIS
     Route: 058
     Dates: start: 20151029, end: 20161220
  2. SIRDALUD [Concomitant]
     Active Substance: TIZANIDINE
     Indication: INTERVERTEBRAL DISC DISORDER
     Route: 048
     Dates: start: 20160325
  3. DORETA [Concomitant]
     Active Substance: ACETAMINOPHEN\TRAMADOL HYDROCHLORIDE
     Indication: INTERVERTEBRAL DISC DISORDER
     Dosage: 37.5 / 325 MG
     Route: 048
     Dates: start: 20160609
  4. ELICEA [Concomitant]
     Active Substance: ESCITALOPRAM OXALATE
     Indication: DEPRESSION
     Route: 048
     Dates: start: 20151030

REACTIONS (2)
  - Asthenia [Recovered/Resolved with Sequelae]
  - Pain [Recovered/Resolved with Sequelae]

NARRATIVE: CASE EVENT DATE: 20161220
